FAERS Safety Report 25812429 (Version 2)
Quarter: 2025Q3

REPORT INFORMATION
  Report Type: Report from Study
  Country: US (occurrence: US)
  Receive Date: 20250917
  Receipt Date: 20250925
  Transmission Date: 20251021
  Serious: Yes (Death, Other)
  Sender: ALEXION PHARMACEUTICALS
  Company Number: US-AstraZeneca-CH-00951058A

PATIENT
  Age: 84 Year
  Sex: Male
  Weight: 78.005 kg

DRUGS (22)
  1. DAPAGLIFLOZIN [Suspect]
     Active Substance: DAPAGLIFLOZIN
     Route: 065
  2. BREZTRI [Concomitant]
     Active Substance: BUDESONIDE\FORMOTEROL\GLYCOPYRROLATE
     Route: 065
  3. ESOMEPRAZOLE [Concomitant]
     Active Substance: ESOMEPRAZOLE
     Indication: Gastrooesophageal reflux disease
  4. ASPIRIN [Concomitant]
     Active Substance: ASPIRIN
  5. ATORVASTATIN [Concomitant]
     Active Substance: ATORVASTATIN
     Indication: Blood cholesterol
  6. BACLOFEN [Concomitant]
     Active Substance: BACLOFEN
     Indication: Myalgia
  7. BRIMONIDINE [Concomitant]
     Active Substance: BRIMONIDINE TARTRATE
     Route: 065
  8. CLOPIDOGREL [Concomitant]
     Active Substance: CLOPIDOGREL BISULFATE
     Route: 065
  9. COLCHICINE [Concomitant]
     Active Substance: COLCHICINE
     Route: 065
  10. DICLOFENAC [Concomitant]
     Active Substance: DICLOFENAC
     Route: 065
  11. DORZOLAMIDE [Concomitant]
     Active Substance: DORZOLAMIDE
     Route: 065
  12. EZETIMIBE [Concomitant]
     Active Substance: EZETIMIBE
     Route: 065
  13. FARXIGA [Concomitant]
     Active Substance: DAPAGLIFLOZIN PROPANEDIOL
     Route: 065
  14. FINASTERIDE [Concomitant]
     Active Substance: FINASTERIDE
     Route: 065
  15. GLIPIZIDE [Concomitant]
     Active Substance: GLIPIZIDE
     Route: 065
  16. IPRATROPIUM [Concomitant]
     Active Substance: IPRATROPIUM
     Route: 065
  17. LATANOPROST [Concomitant]
     Active Substance: LATANOPROST
     Route: 065
  18. MELOXICAM [Concomitant]
     Active Substance: MELOXICAM
     Route: 065
  19. METOPROLOL SUCCINATE [Concomitant]
     Active Substance: METOPROLOL SUCCINATE
     Route: 065
  20. RANOLAZINE [Concomitant]
     Active Substance: RANOLAZINE
     Route: 065
  21. VALSARTAN [Concomitant]
     Active Substance: VALSARTAN
     Indication: Blood pressure measurement
     Route: 065
  22. INFLUENZA VIRUS VACCINE [Concomitant]
     Active Substance: INFLUENZA VIRUS VACCINE

REACTIONS (17)
  - Death [Fatal]
  - Rheumatoid arthritis [Unknown]
  - Hyperthyroidism [Unknown]
  - Chronic obstructive pulmonary disease [Unknown]
  - Interstitial lung disease [Unknown]
  - Overweight [Unknown]
  - Glaucoma [Unknown]
  - Benign prostatic hyperplasia [Unknown]
  - Anaemia [Unknown]
  - Proteinuria [Unknown]
  - Peripheral vascular disorder [Unknown]
  - Type 2 diabetes mellitus [Unknown]
  - Chronic left ventricular failure [Unknown]
  - Mitral valve atresia [Unknown]
  - Atrial fibrillation [Unknown]
  - Essential hypertension [Unknown]
  - Obstructive sleep apnoea syndrome [Unknown]

NARRATIVE: CASE EVENT DATE: 20240415
